FAERS Safety Report 17844726 (Version 1)
Quarter: 2020Q2

REPORT INFORMATION
  Report Type: Spontaneous
  Country: US (occurrence: US)
  Receive Date: 20200601
  Receipt Date: 20200601
  Transmission Date: 20200714
  Serious: No
  Sender: FDA-Public Use
  Company Number: US-SUN PHARMACEUTICAL INDUSTRIES LTD-2020R1-237055

PATIENT
  Sex: Male

DRUGS (1)
  1. BROMSITE [Suspect]
     Active Substance: BROMFENAC SODIUM
     Indication: CATARACT OPERATION
     Dosage: UNK
     Route: 047
     Dates: start: 20191204

REACTIONS (4)
  - Product dose omission [Unknown]
  - Liquid product physical issue [Unknown]
  - Off label use [Not Recovered/Not Resolved]
  - Product packaging issue [Unknown]
